FAERS Safety Report 4915181-0 (Version None)
Quarter: 2006Q1

REPORT INFORMATION
  Report Type: 
  Country: None (occurrence: None)
  Receive Date: 20060216
  Receipt Date: 20060216
  Transmission Date: 20060701
  Serious: Yes (Hospitalization)
  Sender: FDA-Public Use
  Company Number: None

PATIENT
  Sex: Female
  Weight: 81.6475 kg

DRUGS (7)
  1. NAPROSYN [Suspect]
     Indication: PAIN
     Dosage: PO, PRIOR TO ADMISSION
  2. AVAPRO [Concomitant]
  3. AVANDIA [Concomitant]
  4. VERAPAMIL [Concomitant]
  5. METOPROLOL [Concomitant]
  6. LIPITOR [Concomitant]
  7. AMARYL [Concomitant]

REACTIONS (5)
  - BURNING SENSATION [None]
  - CHILLS [None]
  - HEADACHE [None]
  - LOCAL SWELLING [None]
  - NAUSEA [None]
